FAERS Safety Report 17386615 (Version 2)
Quarter: 2020Q1

REPORT INFORMATION
  Report Type: Spontaneous
  Country: US (occurrence: US)
  Receive Date: 20200206
  Receipt Date: 20200316
  Transmission Date: 20200409
  Serious: No
  Sender: FDA-Public Use
  Company Number: US-ASTRAZENECA-2020SE05032

PATIENT
  Age: 75 Year
  Sex: Female

DRUGS (2)
  1. VENTOLIN HFA [Concomitant]
     Active Substance: ALBUTEROL SULFATE
     Indication: INHALATION THERAPY
  2. SYMBICORT [Suspect]
     Active Substance: BUDESONIDE\FORMOTEROL FUMARATE DIHYDRATE
     Indication: ASTHMA
     Dosage: 160/4.5, 2 PUFFS TWICE DAILY
     Route: 055

REACTIONS (4)
  - Product dose omission [Unknown]
  - Product packaging quantity issue [Unknown]
  - Circumstance or information capable of leading to medication error [Unknown]
  - Dyspnoea [Unknown]
